FAERS Safety Report 13678275 (Version 1)
Quarter: 2017Q2

REPORT INFORMATION
  Report Type: Spontaneous
  Country: DE (occurrence: DE)
  Receive Date: 20170622
  Receipt Date: 20170622
  Transmission Date: 20170830
  Serious: Yes (Other)
  Sender: FDA-Public Use
  Company Number: DE-BIOVITRUM-2017DE0611

PATIENT
  Sex: Male

DRUGS (2)
  1. KINERET [Suspect]
     Active Substance: ANAKINRA
     Indication: HISTIOCYTOSIS HAEMATOPHAGIC
  2. ETOPOSIDE. [Concomitant]
     Active Substance: ETOPOSIDE
     Indication: CHRONIC MYELOID LEUKAEMIA

REACTIONS (3)
  - Infection [Unknown]
  - Acute kidney injury [Unknown]
  - Osteonecrosis [Unknown]
